FAERS Safety Report 9826861 (Version 1)
Quarter: 2014Q1

REPORT INFORMATION
  Report Type: Spontaneous
  Country: US (occurrence: US)
  Receive Date: 20140117
  Receipt Date: 20140117
  Transmission Date: 20141002
  Serious: No
  Sender: FDA-Public Use
  Company Number: US-009507513-1401USA005516

PATIENT
  Age: 52 Year
  Sex: Female

DRUGS (1)
  1. CLARITIN-D-24 [Suspect]
     Indication: NASOPHARYNGITIS
     Dosage: 10 MG, QAM
     Route: 048

REACTIONS (4)
  - Agitation [Unknown]
  - Nervousness [Unknown]
  - Muscle twitching [Unknown]
  - Therapeutic response decreased [Unknown]
